FAERS Safety Report 4381509-6 (Version None)
Quarter: 2004Q2

REPORT INFORMATION
  Report Type: 
  Country: None (occurrence: None)
  Receive Date: 20040616
  Receipt Date: 20040604
  Transmission Date: 20050107
  Serious: Yes (Hospitalization, Other)
  Sender: FDA-Public Use
  Company Number: 2004037837

PATIENT
  Age: 73 Year
  Sex: Female

DRUGS (13)
  1. NEURONTIN [Suspect]
     Indication: FIBROMYALGIA
     Dosage: 1800 MG (600 MG, 3 IN 1 D), ORAL
     Route: 048
  2. LIPITOR [Suspect]
     Indication: BLOOD CHOLESTEROL INCREASED
     Dosage: 10 MG (10 MG, 1 IN 1 D), ORAL
     Route: 048
  3. ROSIGLITAZONE MALEATE [Concomitant]
  4. INSULIN HUMAN (INSULIN HUMAN) [Concomitant]
  5. INSULIN GLARGINE (INSULIN GLARGINE) [Concomitant]
  6. FUROSEMIDE [Concomitant]
  7. AMLODIPINE BESILATE (AMLODIPIEN BESILATE) [Concomitant]
  8. FOLIC ACID [Concomitant]
  9. PAROXETINE HCL [Concomitant]
  10. CARISOPRODOL (CARISOPRODOL) [Concomitant]
  11. NORGESIC FORTE (ACETYLSALICYLIC ACID, CAFFEINE, ORPHENADRINE CITRATE) [Concomitant]
  12. TOCOPHEROL CONCENTRATE CAP [Concomitant]
  13. VITAMINS (VITAMINS) [Concomitant]

REACTIONS (6)
  - ANKLE FRACTURE [None]
  - BLOOD CHOLESTEROL INCREASED [None]
  - FOOT FRACTURE [None]
  - HERPES ZOSTER [None]
  - MYALGIA [None]
  - OSTEOPOROSIS [None]
